FAERS Safety Report 13268785 (Version 2)
Quarter: 2017Q3

REPORT INFORMATION
  Report Type: Spontaneous
  Country: US (occurrence: US)
  Receive Date: 20170224
  Receipt Date: 20170901
  Transmission Date: 20171127
  Serious: No
  Sender: FDA-Public Use
  Company Number: US-ASTRAZENECA-2017SE17796

PATIENT
  Age: 25606 Day
  Sex: Female
  Weight: 73.5 kg

DRUGS (2)
  1. CRESTOR [Suspect]
     Active Substance: ROSUVASTATIN CALCIUM
     Indication: ARTERIOSCLEROSIS
     Route: 048
     Dates: start: 20161201
  2. CRESTOR [Suspect]
     Active Substance: ROSUVASTATIN CALCIUM
     Indication: ARTERIOSCLEROSIS
     Dosage: GENERIC
     Route: 048
     Dates: start: 20170130

REACTIONS (3)
  - Joint stiffness [Not Recovered/Not Resolved]
  - Pain [Not Recovered/Not Resolved]
  - Product substitution issue [Unknown]

NARRATIVE: CASE EVENT DATE: 20170201
